FAERS Safety Report 5270398-3 (Version None)
Quarter: 2007Q1

REPORT INFORMATION
  Report Type: 
  Country: None (occurrence: None)
  Receive Date: 20070320
  Receipt Date: 20070312
  Transmission Date: 20070707
  Serious: Yes (Hospitalization, Other)
  Sender: FDA-Public Use
  Company Number: PL-PFIZER INC-2007018628

PATIENT
  Sex: Female
  Weight: 20.4 kg

DRUGS (1)
  1. GENOTROPIN [Suspect]
     Indication: HYPOPITUITARISM
     Dosage: TEXT:0,69/U/KG/WEEK
     Dates: start: 20060706, end: 20061009

REACTIONS (5)
  - DIABETES MELLITUS INSULIN-DEPENDENT [None]
  - HYPERGLYCAEMIA [None]
  - POLYDIPSIA [None]
  - POLYURIA [None]
  - WEIGHT DECREASED [None]
